FAERS Safety Report 9373389 (Version 1)
Quarter: 2013Q2

REPORT INFORMATION
  Report Type: Spontaneous
  Country: CA (occurrence: CA)
  Receive Date: 20130627
  Receipt Date: 20130627
  Transmission Date: 20140414
  Serious: Yes (Other)
  Sender: FDA-Public Use
  Company Number: CA-TARO-2013P1010355

PATIENT
  Age: 40 Year
  Sex: Male

DRUGS (3)
  1. WARFARIN [Suspect]
     Dates: start: 2013
  2. WARFARIN [Suspect]
     Dates: start: 2013
  3. INNOHEP [Concomitant]

REACTIONS (4)
  - Hepatic enzyme increased [Unknown]
  - Abdominal pain [Unknown]
  - Splenomegaly [Unknown]
  - Impaired healing [Not Recovered/Not Resolved]
